FAERS Safety Report 15587114 (Version 1)
Quarter: 2018Q4

REPORT INFORMATION
  Report Type: Spontaneous
  Country: US (occurrence: US)
  Receive Date: 20181105
  Receipt Date: 20181105
  Transmission Date: 20190205
  Serious: Yes (Disabling, Other)
  Sender: FDA-Public Use
  Company Number: US-REGENERON PHARMACEUTICALS, INC.-2018-42754

PATIENT

DRUGS (2)
  1. EYLEA [Suspect]
     Active Substance: AFLIBERCEPT
     Indication: NEOVASCULAR AGE-RELATED MACULAR DEGENERATION
     Dosage: 0.1 ML, EVERY 35 DAYS
     Route: 031
     Dates: start: 20180815, end: 20180919
  2. EYLEA [Suspect]
     Active Substance: AFLIBERCEPT
     Dosage: 0.1 ML, EVERY 35 DAYS, LAST DOSE PRIOR EVENTS
     Route: 031
     Dates: start: 20180919, end: 20180919

REACTIONS (4)
  - Endophthalmitis [Recovering/Resolving]
  - Wrong technique in product usage process [Unknown]
  - Blindness unilateral [Unknown]
  - Overdose [Unknown]

NARRATIVE: CASE EVENT DATE: 20180919
